FAERS Safety Report 6444881-9 (Version None)
Quarter: 2009Q4

REPORT INFORMATION
  Report Type: 
  Country: None (occurrence: None)
  Receive Date: 20091118
  Receipt Date: 20091109
  Transmission Date: 20100525
  Serious: Yes (Hospitalization)
  Sender: FDA-Public Use
  Company Number: GXKR2009DE12140

PATIENT
  Sex: Male

DRUGS (1)
  1. AMOXI 1A PHARMA (NGX) [Suspect]
     Indication: OTITIS MEDIA
     Dosage: 2.5 ML, TID
     Route: 048
     Dates: start: 20091026, end: 20091102

REACTIONS (2)
  - JOINT SWELLING [None]
  - RASH PAPULAR [None]
